FAERS Safety Report 21338105 (Version 1)
Quarter: 2022Q3

REPORT INFORMATION
  Report Type: Spontaneous
  Country: NL (occurrence: US)
  Receive Date: 20220915
  Receipt Date: 20220915
  Transmission Date: 20221027
  Serious: No
  Sender: FDA-Public Use
  Company Number: NL-AUROBINDO-AUR-APL-2022-031402

PATIENT
  Age: 82 Year
  Sex: Male

DRUGS (3)
  1. PREGABALIN [Suspect]
     Active Substance: PREGABALIN
     Dosage: 75 MG (4/6X75MG)
  2. PREGABALIN [Suspect]
     Active Substance: PREGABALIN
     Dosage: 75 MG (1X75MG)
  3. LORAZEPAM [Suspect]
     Active Substance: LORAZEPAM
     Indication: Sleep disorder
     Dosage: UNK

REACTIONS (3)
  - Poor quality sleep [Unknown]
  - Sleep disorder [Recovered/Resolved]
  - Product substitution issue [Unknown]
